FAERS Safety Report 24637957 (Version 1)
Quarter: 2024Q4

REPORT INFORMATION
  Report Type: Spontaneous
  Country: US (occurrence: US)
  Receive Date: 20241119
  Receipt Date: 20241119
  Transmission Date: 20250115
  Serious: No
  Sender: SEPTODONT
  Company Number: US-SEPTODONT-2024018796

PATIENT

DRUGS (3)
  1. SEPTOCAINE [Suspect]
     Active Substance: ARTICAINE HYDROCHLORIDE\EPINEPHRINE BITARTRATE
     Indication: Dental local anaesthesia
     Dosage: DOUBLE THE STRENGTH OF LIDOCAINE?6 TIMES AND TWICE INTO THE ROOT DIRECTLY
     Route: 004
     Dates: start: 20240703, end: 20240703
  2. LIDOCAINE [Suspect]
     Active Substance: LIDOCAINE
     Indication: Local anaesthesia
     Dosage: 7 TIMES
     Dates: start: 20240703, end: 20240703
  3. MOTRIN [Concomitant]
     Active Substance: IBUPROFEN
     Dosage: 800 MG
     Dates: start: 20240703, end: 20240703

REACTIONS (6)
  - Drug ineffective [Unknown]
  - Trismus [Unknown]
  - Swelling face [Not Recovered/Not Resolved]
  - Pain in jaw [Not Recovered/Not Resolved]
  - Lip injury [Not Recovered/Not Resolved]
  - Burning sensation mucosal [Not Recovered/Not Resolved]

NARRATIVE: CASE EVENT DATE: 20240703
